FAERS Safety Report 12528248 (Version 2)
Quarter: 2016Q3

REPORT INFORMATION
  Report Type: Spontaneous
  Country: CN (occurrence: CN)
  Receive Date: 20160705
  Receipt Date: 20160706
  Transmission Date: 20161109
  Serious: Yes (Other)
  Sender: FDA-Public Use
  Company Number: CN-009507513-1607CHN001219

PATIENT
  Age: 59 Year
  Sex: Male
  Weight: 58.6 kg

DRUGS (19)
  1. GEMCITABINE [Concomitant]
     Active Substance: GEMCITABINE\GEMCITABINE HYDROCHLORIDE
     Indication: CHEMOTHERAPY
     Dosage: 1.6 G/D1-D8, TREATMENT REGIMEN GP
     Route: 041
     Dates: start: 20150108, end: 20150115
  2. CISPLATIN. [Concomitant]
     Active Substance: CISPLATIN
     Indication: CHEMOTHERAPY
     Dosage: 40 MG/ D2-D4, TREATMENT REGIMEN GP
     Route: 041
     Dates: start: 20150109, end: 20150111
  3. OMEPRAZOLE SODIUM [Concomitant]
     Active Substance: OMEPRAZOLE SODIUM
     Indication: PROPHYLAXIS AGAINST GASTROINTESTINAL ULCER
     Dosage: 40 MG, QD
     Route: 041
     Dates: start: 20150108, end: 20150111
  4. EMEND [Suspect]
     Active Substance: APREPITANT
     Indication: PROPHYLAXIS OF NAUSEA AND VOMITING
     Dosage: 125 MG, ONCE, DAY 1
     Route: 048
     Dates: start: 20150109, end: 20150109
  5. MA REN RUAN JIAO NANG [Concomitant]
     Indication: PROPHYLAXIS
     Dosage: 3.6 G, QD
     Route: 048
     Dates: start: 20150111, end: 20150116
  6. MANNITOL. [Concomitant]
     Active Substance: MANNITOL
     Indication: POLYURIA
     Dosage: 250 ML/CC, QD, STRENGTH: 50G/250ML
     Route: 041
     Dates: start: 20150109, end: 20150111
  7. GLUTATHIONE [Concomitant]
     Active Substance: GLUTATHIONE
     Indication: PROPHYLAXIS
     Dosage: 1.8 G, QD
     Route: 041
     Dates: start: 20150108, end: 20150111
  8. EMEND [Suspect]
     Active Substance: APREPITANT
     Dosage: 80 MG, ONCE, DAY 2
     Route: 048
     Dates: start: 20150110, end: 20150110
  9. DEXAMETHASONE. [Concomitant]
     Active Substance: DEXAMETHASONE
     Indication: PROPHYLAXIS OF NAUSEA AND VOMITING
     Dosage: 3 MG, QD (STRENGTH 5 MG/ML)
     Route: 041
     Dates: start: 20150109, end: 20150111
  10. LEVOCARNITINE. [Concomitant]
     Active Substance: LEVOCARNITINE
     Indication: CARDIOVASCULAR EVENT PROPHYLAXIS
     Dosage: 3 G, QD (1G/5 ML)
     Route: 041
     Dates: start: 20150115, end: 20150115
  11. SODIUM BICARBONATE. [Concomitant]
     Active Substance: SODIUM BICARBONATE
     Indication: URINE ALKALINISATION THERAPY
     Dosage: STRENGTH: 5%1ML; 40 ML/CC, QD
     Route: 041
     Dates: start: 20150108, end: 20150111
  12. SODIUM BICARBONATE. [Concomitant]
     Active Substance: SODIUM BICARBONATE
     Dosage: 40 ML/CC, QD
     Route: 041
     Dates: start: 20150115, end: 20150115
  13. OMEPRAZOLE SODIUM [Concomitant]
     Active Substance: OMEPRAZOLE SODIUM
     Dosage: 40 MG, QD
     Route: 041
     Dates: start: 20150115, end: 20150115
  14. RAMOSETRON HYDROCHLORIDE [Concomitant]
     Active Substance: RAMOSETRON HYDROCHLORIDE
     Indication: PROPHYLAXIS
     Dosage: 0.3 MG, QD
     Route: 041
     Dates: start: 20150108
  15. EMEND [Suspect]
     Active Substance: APREPITANT
     Dosage: 80 MG, ONCE, DAY 3
     Route: 048
     Dates: start: 20150111, end: 20150111
  16. RAMOSETRON HYDROCHLORIDE [Concomitant]
     Active Substance: RAMOSETRON HYDROCHLORIDE
     Dosage: 0.3 MG, QD
     Route: 041
     Dates: start: 20150109, end: 20150111
  17. LEVOCARNITINE. [Concomitant]
     Active Substance: LEVOCARNITINE
     Indication: INCREASED APPETITE
     Dosage: 3 G, QD STRENGTH: (1G/5 ML)
     Route: 041
     Dates: start: 20150108, end: 20150111
  18. ZOLEDRONIC ACID [Concomitant]
     Active Substance: ZOLEDRONIC ACID
     Indication: PROPHYLAXIS
     Dosage: 4 MG, QD
     Route: 041
     Dates: start: 20150111, end: 20150112
  19. GLUTATHIONE [Concomitant]
     Active Substance: GLUTATHIONE
     Dosage: 1.8 G, QD
     Route: 041
     Dates: start: 20150115

REACTIONS (2)
  - Atrial fibrillation [Recovered/Resolved]
  - Pyrexia [Recovered/Resolved]

NARRATIVE: CASE EVENT DATE: 20150113
